FAERS Safety Report 20485053 (Version 4)
Quarter: 2022Q3

REPORT INFORMATION
  Report Type: Report from Study
  Country: US (occurrence: US)
  Receive Date: 20220217
  Receipt Date: 20220720
  Transmission Date: 20221027
  Serious: Yes (Death, Hospitalization)
  Sender: FDA-Public Use
  Company Number: US-SA-SAC20220216000629

PATIENT
  Age: 53 Year
  Sex: Male

DRUGS (31)
  1. DUPILUMAB [Suspect]
     Active Substance: DUPILUMAB
     Indication: Asthma
     Dosage: 600 MG, 1X
     Route: 058
     Dates: start: 20210430, end: 20210430
  2. DUPILUMAB [Suspect]
     Active Substance: DUPILUMAB
     Indication: Cough
     Dosage: 300 MG, QOW
     Route: 058
  3. SULFASALAZINE [Concomitant]
     Active Substance: SULFASALAZINE
  4. POTASSIUM [Concomitant]
     Active Substance: POTASSIUM
  5. ATENOLOL [Concomitant]
     Active Substance: ATENOLOL
  6. PREDNISONE [Concomitant]
     Active Substance: PREDNISONE
  7. SPIRIVA RESPIMAT [Concomitant]
     Active Substance: TIOTROPIUM BROMIDE
  8. QVAR REDIHALER [Concomitant]
     Active Substance: BECLOMETHASONE DIPROPIONATE
  9. DULERA [Concomitant]
     Active Substance: FORMOTEROL FUMARATE DIHYDRATE\MOMETASONE FUROATE
  10. PROAIR HFA [Concomitant]
     Active Substance: ALBUTEROL SULFATE
  11. LIPITOR [Concomitant]
     Active Substance: ATORVASTATIN CALCIUM
  12. PRADAXA [Concomitant]
     Active Substance: DABIGATRAN ETEXILATE MESYLATE
  13. ABILIFY [Concomitant]
     Active Substance: ARIPIPRAZOLE
  14. CLONIDINE [Concomitant]
     Active Substance: CLONIDINE
  15. TAMSULOSIN HYDROCHLORIDE [Concomitant]
     Active Substance: TAMSULOSIN HYDROCHLORIDE
  16. LASIX [Concomitant]
     Active Substance: FUROSEMIDE
  17. BUSPIRONE HCL [Concomitant]
     Active Substance: BUSPIRONE HYDROCHLORIDE
  18. FERROUS SULFATE [Concomitant]
     Active Substance: FERROUS SULFATE
  19. CARDIZEM [Concomitant]
     Active Substance: DILTIAZEM HYDROCHLORIDE
  20. TRAZODONE HCL [Concomitant]
     Active Substance: TRAZODONE HYDROCHLORIDE
  21. DULOXETINE HYDROCHLORIDE [Concomitant]
     Active Substance: DULOXETINE HYDROCHLORIDE
  22. SEROQUEL [Concomitant]
     Active Substance: QUETIAPINE FUMARATE
  23. OMEPRAZOLE [Concomitant]
     Active Substance: OMEPRAZOLE
  24. LAMICTAL [Concomitant]
     Active Substance: LAMOTRIGINE
  25. HYDROXYCHLOROQUINE SULFATE [Concomitant]
     Active Substance: HYDROXYCHLOROQUINE SULFATE
  26. METFORMIN [Concomitant]
     Active Substance: METFORMIN HYDROCHLORIDE
  27. KLONOPIN [Concomitant]
     Active Substance: CLONAZEPAM
  28. OXYBUTYNIN CHLORIDE [Concomitant]
     Active Substance: OXYBUTYNIN CHLORIDE
  29. VITAMIN D NOS [Concomitant]
     Active Substance: VITAMIN D NOS
  30. PEPCID [Concomitant]
     Active Substance: FAMOTIDINE
  31. CITRACAL + D3 [Concomitant]

REACTIONS (4)
  - COVID-19 [Fatal]
  - Asthma [Fatal]
  - Hospitalisation [Unknown]
  - Product use in unapproved indication [Unknown]
